FAERS Safety Report 4334037-8 (Version None)
Quarter: 2004Q1

REPORT INFORMATION
  Report Type: 
  Country: None (occurrence: None)
  Receive Date: 20040329
  Receipt Date: 20040120
  Transmission Date: 20041129
  Serious: No
  Sender: FDA-Public Use
  Company Number: 03P-163-0245385-00

PATIENT
  Age: 60 Year
  Sex: Female
  Weight: 81.6475 kg

DRUGS (6)
  1. HUMIRA [Suspect]
     Indication: RHEUMATOID ARTHRITIS
     Dosage: 40 MG, 1 IN 2 WK, SUBCUTANEOUS
     Route: 058
     Dates: start: 20031203, end: 20031201
  2. PREDNISONE [Concomitant]
  3. LEFLUNOMIDE [Concomitant]
  4. OMEPRAZOLE [Concomitant]
  5. FUROSEMIDE [Concomitant]
  6. GLUCOSAMINE [Concomitant]

REACTIONS (2)
  - PRURITUS [None]
  - RASH [None]
